FAERS Safety Report 6616079-2 (Version None)
Quarter: 2010Q1

REPORT INFORMATION
  Report Type: 
  Country: None (occurrence: None)
  Receive Date: 20100305
  Receipt Date: 20100222
  Transmission Date: 20100710
  Serious: Yes (Other)
  Sender: FDA-Public Use
  Company Number: PHHY2010DE10703

PATIENT
  Sex: Male

DRUGS (1)
  1. EXFORGE HCT [Suspect]
     Dosage: 160/10/12.5 MG
     Route: 048
     Dates: start: 20091218, end: 20100215

REACTIONS (3)
  - HAEMATOCHEZIA [None]
  - HEADACHE [None]
  - NAUSEA [None]
